FAERS Safety Report 6874497-1 (Version None)
Quarter: 2010Q3

REPORT INFORMATION
  Report Type: 
  Country: None (occurrence: None)
  Receive Date: 20100723
  Receipt Date: 20100723
  Transmission Date: 20110219
  Serious: Yes (Hospitalization)
  Sender: FDA-Public Use
  Company Number: None

PATIENT
  Age: 50 Year
  Sex: Female
  Weight: 81.6475 kg

DRUGS (1)
  1. XENICAL [Suspect]
     Indication: OBESITY
     Dosage: DAILY PO
     Route: 048
     Dates: start: 20040207, end: 20040530

REACTIONS (1)
  - COLITIS ULCERATIVE [None]
